FAERS Safety Report 9332890 (Version 1)
Quarter: 2013Q2

REPORT INFORMATION
  Report Type: Spontaneous
  Country: US (occurrence: US)
  Receive Date: 20130606
  Receipt Date: 20130606
  Transmission Date: 20140414
  Serious: No
  Sender: FDA-Public Use
  Company Number: US-BAYER-2013-069253

PATIENT
  Age: 32 Year
  Sex: Female

DRUGS (1)
  1. AVELOX I.V. [Suspect]
     Indication: SINUSITIS
     Dosage: 400 MG, QD

REACTIONS (3)
  - Tendonitis [None]
  - Tendon pain [None]
  - Musculoskeletal discomfort [None]
